FAERS Safety Report 4820255-9 (Version None)
Quarter: 2005Q4

REPORT INFORMATION
  Report Type: 
  Country: None (occurrence: None)
  Receive Date: 20051104
  Receipt Date: 20050824
  Transmission Date: 20060501
  Serious: Yes (Hospitalization, Other)
  Sender: FDA-Public Use
  Company Number: US-BRISTOL-MYERS SQUIBB COMPANY-13088885

PATIENT
  Age: 71 Year
  Sex: Female
  Weight: 89 kg

DRUGS (8)
  1. TAXOL [Suspect]
     Indication: NEOPLASM MALIGNANT
     Route: 042
     Dates: start: 20050520, end: 20050520
  2. CARBOPLATIN [Suspect]
     Indication: NEOPLASM MALIGNANT
     Route: 042
     Dates: start: 20050520, end: 20050520
  3. VEPESID [Suspect]
     Indication: NEOPLASM MALIGNANT
     Route: 042
     Dates: start: 20050520, end: 20050520
  4. PEPCID [Concomitant]
     Indication: GASTROOESOPHAGEAL REFLUX DISEASE
  5. PAXIL [Concomitant]
     Indication: DEPRESSION
     Dates: start: 20050401
  6. HYDROCODONE [Concomitant]
     Indication: PAIN
     Dates: start: 20050401
  7. REGULAR INSULIN [Concomitant]
     Indication: GLUCOSE TOLERANCE IMPAIRED
     Dates: start: 20050423
  8. DECADRON SRC [Concomitant]
     Indication: SPINAL CORD COMPRESSION
     Dates: start: 20050501

REACTIONS (5)
  - DEHYDRATION [None]
  - GROIN ABSCESS [None]
  - HYPERGLYCAEMIA [None]
  - OESOPHAGEAL CANDIDIASIS [None]
  - PANCYTOPENIA [None]
